FAERS Safety Report 24001169 (Version 3)
Quarter: 2024Q3

REPORT INFORMATION
  Report Type: Spontaneous
  Country: CO (occurrence: CO)
  Receive Date: 20240621
  Receipt Date: 20240711
  Transmission Date: 20241017
  Serious: Yes (Death, Hospitalization)
  Sender: BIOMARIN
  Company Number: CO-BIOMARINAP-CO-2024-158682

PATIENT

DRUGS (1)
  1. VIMIZIM [Suspect]
     Active Substance: ELOSULFASE ALFA
     Indication: Mucopolysaccharidosis IV
     Dosage: 60 MILLIGRAM, QW
     Route: 042
     Dates: start: 20171218

REACTIONS (10)
  - Cardio-respiratory arrest [Fatal]
  - Influenza like illness [Not Recovered/Not Resolved]
  - Oxygen saturation decreased [Unknown]
  - Hypertension [Unknown]
  - Respiratory distress [Not Recovered/Not Resolved]
  - Chest pain [Not Recovered/Not Resolved]
  - Back pain [Not Recovered/Not Resolved]
  - Cough [Not Recovered/Not Resolved]
  - Fatigue [Not Recovered/Not Resolved]
  - Malaise [Not Recovered/Not Resolved]

NARRATIVE: CASE EVENT DATE: 20240615
